FAERS Safety Report 6389720-X (Version None)
Quarter: 2009Q4

REPORT INFORMATION
  Report Type: 
  Country: None (occurrence: None)
  Receive Date: 20091002
  Receipt Date: 20091002
  Transmission Date: 20100525
  Serious: Yes (Life-Threatening, Other)
  Sender: FDA-Public Use
  Company Number: None

PATIENT
  Age: 52 Year
  Sex: Female
  Weight: 54.4316 kg

DRUGS (1)
  1. CELEBREX [Suspect]
     Indication: PAIN
     Dosage: 25MG QID PO
     Route: 048
     Dates: start: 20070630, end: 20070830

REACTIONS (1)
  - SEROTONIN SYNDROME [None]
